FAERS Safety Report 14706772 (Version 3)
Quarter: 2018Q3

REPORT INFORMATION
  Report Type: Report from Study
  Country: None (occurrence: US)
  Receive Date: 20180402
  Receipt Date: 20180703
  Transmission Date: 20181010
  Serious: Yes (Hospitalization, Other)
  Sender: FDA-Public Use
  Company Number: US-ABBVIE-18K-163-2305889-00

PATIENT
  Age: 61 Year
  Sex: Male

DRUGS (1)
  1. HUMIRA [Suspect]
     Active Substance: ADALIMUMAB
     Indication: PSORIATIC ARTHROPATHY
     Route: 058

REACTIONS (7)
  - Myocardial oedema [Unknown]
  - Dizziness [Unknown]
  - Fall [Unknown]
  - Fluid retention [Unknown]
  - Fluid intake reduced [Unknown]
  - Cardiac failure congestive [Unknown]
  - Back pain [Unknown]

NARRATIVE: CASE EVENT DATE: 201711
